APPROVED DRUG PRODUCT: CLOBETASOL PROPIONATE
Active Ingredient: CLOBETASOL PROPIONATE
Strength: 0.05%
Dosage Form/Route: SOLUTION;TOPICAL
Application: A209361 | Product #001 | TE Code: AT
Applicant: MACLEODS PHARMACEUTICALS LTD
Approved: Oct 25, 2017 | RLD: No | RS: No | Type: RX